FAERS Safety Report 10178427 (Version 1)
Quarter: 2014Q2

REPORT INFORMATION
  Report Type: Spontaneous
  Country: US (occurrence: None)
  Receive Date: 20140516
  Receipt Date: 20140516
  Transmission Date: 20141212
  Serious: No
  Sender: FDA-Public Use
  Company Number: None

PATIENT
  Age: 46 Year
  Sex: Male
  Weight: 97.52 kg

DRUGS (3)
  1. LISINOPRIL [Suspect]
     Indication: HYPERTENSION
     Route: 048
     Dates: start: 20140401, end: 20140514
  2. HYDROCHLOROTHIAZIDE [Suspect]
     Indication: HYPERTENSION
     Dosage: 1 TAB
     Route: 048
     Dates: start: 20140401, end: 20140514
  3. ASA 81 MG [Concomitant]

REACTIONS (3)
  - Drug dispensing error [None]
  - Incorrect dose administered [None]
  - Drug dispensed to wrong patient [None]
